FAERS Safety Report 7919704-9 (Version None)
Quarter: 2011Q4

REPORT INFORMATION
  Report Type: 
  Country: None (occurrence: None)
  Receive Date: 20111117
  Receipt Date: 20111111
  Transmission Date: 20120403
  Serious: Yes (Other)
  Sender: FDA-Public Use
  Company Number: US-CELGENEUS-163-21880-11091494

PATIENT
  Sex: Female

DRUGS (4)
  1. REVLIMID [Suspect]
     Indication: MULTIPLE MYELOMA
     Dosage: 15 MILLIGRAM
     Route: 048
     Dates: start: 20110321
  2. VELCADE [Concomitant]
     Route: 065
     Dates: start: 20110301
  3. DEXAMETHASONE [Concomitant]
     Route: 065
     Dates: start: 20110301
  4. ARIXTRA [Concomitant]
     Route: 065

REACTIONS (3)
  - CONTUSION [None]
  - TRAUMATIC FRACTURE [None]
  - FALL [None]
